FAERS Safety Report 18252732 (Version 1)
Quarter: 2020Q3

REPORT INFORMATION
  Report Type: Spontaneous
  Country: GB (occurrence: GB)
  Receive Date: 20200910
  Receipt Date: 20200910
  Transmission Date: 20201103
  Serious: Yes (Other)
  Sender: FDA-Public Use
  Company Number: GB-TEVA-2020-GB-1824432

PATIENT
  Age: 58 Year
  Sex: Female
  Weight: 72 kg

DRUGS (14)
  1. FEXOFENADINE [Concomitant]
     Active Substance: FEXOFENADINE HYDROCHLORIDE
     Indication: HYPERSENSITIVITY
     Dosage: UNIT DOSE : 1 DOSAGE FORMS
     Dates: start: 20200327
  2. RANITIDINE. [Concomitant]
     Active Substance: RANITIDINE
     Dosage: UNIT DOSE : 2 DOSAGE FORMS
     Dates: start: 20200327, end: 20200709
  3. SERTRALINE [Concomitant]
     Active Substance: SERTRALINE HYDROCHLORIDE
     Indication: DEPRESSION
     Dosage: UNIT DOSE : 1 DOSAGE FORMS
     Dates: start: 20200327
  4. UNIPHYLLIN [Concomitant]
     Active Substance: THEOPHYLLINE ANHYDROUS
     Indication: ASTHMA
     Dosage: UNIT DOSE : 2 DOSAGE FORMS
     Dates: start: 20200327
  5. OMEPRAZOLE. [Concomitant]
     Active Substance: OMEPRAZOLE
     Dosage: UNIT DOSE : 1 DOSAGE FORMS
     Dates: start: 20200709
  6. CARBOCISTEINE [Concomitant]
     Active Substance: CARBOCYSTEINE
     Dosage: UNIT DOSE : 6 DOSAGE FORMS
     Dates: start: 20200327
  7. MONTELUKAST [Concomitant]
     Active Substance: MONTELUKAST SODIUM
     Indication: DYSPNOEA
     Dosage: 1 DOSAGE FORMS DAILY; IN THE EVENING (FOR BREATHING).
     Dates: start: 20200327
  8. DOXYCYCLINE. [Suspect]
     Active Substance: DOXYCYCLINE
     Dosage: TWO NOW THEN ONE DAILY, UNIT DOSE : 100 MILLIGRAM
     Dates: start: 20200731
  9. VAGIFEM [Concomitant]
     Active Substance: ESTRADIOL
     Dosage: INSERTED PER VAGINA.UNIT DOSE : 2 DOSAGE FORMS
     Dates: start: 20200327
  10. PREDNISOLONE. [Concomitant]
     Active Substance: PREDNISOLONE
     Dosage: 6 AND DECREASE DOSE DAILY BY 1
     Dates: start: 20200327
  11. SODIUM CHLORIDE. [Concomitant]
     Active Substance: SODIUM CHLORIDE
     Dosage: WHEN REQUIRED, UNIT DOSE : 4 DOSAGE FORMS
     Dates: start: 20200327
  12. TRIMBOW [Concomitant]
     Active Substance: BECLOMETHASONE DIPROPIONATE\FORMOTEROL FUMARATE\GLYCOPYRROLATE
     Dosage: PUFFS VIA SPACER, UNIT DOSE : 4 DOSAGE FORMS
     Dates: start: 20200327
  13. AVAMYS [Concomitant]
     Active Substance: FLUTICASONE FUROATE
     Dosage: PUFFS LEFT NOSTRIL, UNIT DOSE : 4 DOSAGE FORMS
     Dates: start: 20200327
  14. SALBUTAMOL [Concomitant]
     Active Substance: ALBUTEROL
     Dosage: PUFFS WHEN NEEDED. UNIT DOSE : 8 DOSAGE FORMS
     Dates: start: 20200327

REACTIONS (1)
  - Rash pruritic [Recovered/Resolved]

NARRATIVE: CASE EVENT DATE: 20200803
